FAERS Safety Report 11306640 (Version 5)
Quarter: 2023Q4

REPORT INFORMATION
  Report Type: Spontaneous
  Country: FR (occurrence: FR)
  Receive Date: 20150723
  Receipt Date: 20231009
  Transmission Date: 20240110
  Serious: Yes (Hospitalization, Disabling, Congenital Anomaly, Other)
  Sender: FDA-Public Use
  Company Number: FR-ABBVIE-15P-056-1432036-00

PATIENT
  Sex: Male

DRUGS (2)
  1. VALPROATE SODIUM [Suspect]
     Active Substance: VALPROATE SODIUM
     Indication: Maternal exposure timing unspecified
     Route: 064
  2. FOLIC ACID [Concomitant]
     Active Substance: FOLIC ACID
     Indication: Product used for unknown indication

REACTIONS (47)
  - Respiratory disorder [Unknown]
  - Hypotonia [Unknown]
  - Myopia [Unknown]
  - Psychomotor skills impaired [Not Recovered/Not Resolved]
  - Autism spectrum disorder [Unknown]
  - Foetal exposure during pregnancy [Unknown]
  - Tremor [Not Recovered/Not Resolved]
  - Speech disorder [Not Recovered/Not Resolved]
  - Communication disorder [Not Recovered/Not Resolved]
  - Aphasia [Not Recovered/Not Resolved]
  - Grunting [Unknown]
  - Stridor [Unknown]
  - Somnolence [Unknown]
  - Ear infection [Unknown]
  - Synovitis [Unknown]
  - Thumb sucking [Unknown]
  - Joint effusion [Unknown]
  - Learning disorder [Unknown]
  - Echolalia [Unknown]
  - Hyperacusis [Unknown]
  - Intellectual disability [Unknown]
  - Trisomy 21 [Unknown]
  - Anxiety [Unknown]
  - Hypersensitivity [Unknown]
  - Hypophagia [Unknown]
  - Nasopharyngitis [Unknown]
  - Language disorder [Unknown]
  - Disturbance in attention [Unknown]
  - Dyslexia [Unknown]
  - Dysarthria [Unknown]
  - Disturbance in social behaviour [Unknown]
  - Abnormal behaviour [Unknown]
  - Clumsiness [Unknown]
  - Clinodactyly [Unknown]
  - Coordination abnormal [Unknown]
  - Joint laxity [Unknown]
  - Dysmorphism [Unknown]
  - Feeding disorder [Unknown]
  - Visual impairment [Unknown]
  - Astigmatism [Unknown]
  - Hemiparesis [Unknown]
  - Dyspraxia [Unknown]
  - Respiratory distress [Unknown]
  - Stereotypy [Unknown]
  - Muscle twitching [Unknown]
  - Dyspraxia [Unknown]
  - Visual acuity tests abnormal [Unknown]
